FAERS Safety Report 10108852 (Version 2)
Quarter: 2014Q2

REPORT INFORMATION
  Report Type: Spontaneous
  Country: US (occurrence: US)
  Receive Date: 20140425
  Receipt Date: 20140430
  Transmission Date: 20141212
  Serious: Yes (Hospitalization)
  Sender: FDA-Public Use
  Company Number: US-BAYER-2014-057903

PATIENT
  Sex: Female

DRUGS (1)
  1. BETASERON [Suspect]
     Dosage: 0.3 MG, QOD
     Route: 058
     Dates: start: 201305

REACTIONS (5)
  - Intervertebral disc displacement [None]
  - Sciatica [None]
  - Peroneal nerve palsy [None]
  - Loss of bladder sensation [None]
  - Gastrointestinal disorder [None]
